FAERS Safety Report 5188789-8 (Version None)
Quarter: 2006Q4

REPORT INFORMATION
  Report Type: 
  Country: None (occurrence: None)
  Receive Date: 20061215
  Receipt Date: 20061201
  Transmission Date: 20070319
  Serious: Yes (Congenital Anomaly)
  Sender: FDA-Public Use
  Company Number: SPV1-2006-01962

PATIENT
  Age: 36 Week
  Sex: Male
  Weight: 3 kg

DRUGS (4)
  1. CARBATROL [Suspect]
     Indication: EPILEPSY
     Dosage: SEE IMAGE
     Route: 064
     Dates: start: 20031225, end: 20040801
  2. CARBATROL [Suspect]
     Indication: EPILEPSY
     Dosage: SEE IMAGE
     Route: 064
     Dates: start: 20040801, end: 20040909
  3. DEPAKOTE [Suspect]
     Indication: EPILEPSY
     Dosage: SEE IMAGE
     Route: 064
     Dates: start: 20031225, end: 20040801
  4. DEPAKOTE [Suspect]
     Indication: EPILEPSY
     Dosage: SEE IMAGE
     Route: 064
     Dates: start: 20040801, end: 20040909

REACTIONS (9)
  - AORTIC STENOSIS [None]
  - BICUSPID AORTIC VALVE [None]
  - CAESAREAN SECTION [None]
  - CLINODACTYLY [None]
  - CONGENITAL ANOMALY [None]
  - DRUG EXPOSURE DURING PREGNANCY [None]
  - DYSMORPHISM [None]
  - NAIL DISORDER [None]
  - PATENT DUCTUS ARTERIOSUS [None]
